FAERS Safety Report 13060268 (Version 5)
Quarter: 2017Q1

REPORT INFORMATION
  Report Type: Spontaneous
  Country: US (occurrence: US)
  Receive Date: 20161223
  Receipt Date: 20170201
  Transmission Date: 20170428
  Serious: Yes (Other)
  Sender: FDA-Public Use
  Company Number: US-BAUSCH-BL-2016-031597

PATIENT
  Sex: Male

DRUGS (1)
  1. PROVENGE [Suspect]
     Active Substance: SIPULEUCEL-T
     Indication: PROSTATE CANCER
     Route: 042
     Dates: start: 20161212, end: 20161212

REACTIONS (4)
  - Back pain [Not Recovered/Not Resolved]
  - Hernia [Unknown]
  - Ulcer [Not Recovered/Not Resolved]
  - Disease progression [Unknown]
